FAERS Safety Report 8246321-6 (Version None)
Quarter: 2012Q1

REPORT INFORMATION
  Report Type: 
  Country: None (occurrence: None)
  Receive Date: 20120330
  Receipt Date: 20120327
  Transmission Date: 20120608
  Serious: Yes (Hospitalization)
  Sender: FDA-Public Use
  Company Number: SG-BAYER-2012-029353

PATIENT
  Sex: Male
  Weight: 46 kg

DRUGS (3)
  1. VINORELBINE [Suspect]
     Indication: NON-SMALL CELL LUNG CANCER
     Dosage: 30 MG, QOD
     Dates: start: 20120308, end: 20120312
  2. SORAFENIB (RAF KINASE INHIBITOR) [Suspect]
     Indication: NON-SMALL CELL LUNG CANCER
     Dosage: 200 MG, BID
     Dates: start: 20120220, end: 20120312
  3. AMLODIPINE [Concomitant]
     Indication: HYPERTENSION
     Dosage: 5 MG, OM
     Route: 048

REACTIONS (1)
  - ISCHAEMIC LIMB PAIN [None]
